FAERS Safety Report 24850457 (Version 5)
Quarter: 2025Q2

REPORT INFORMATION
  Report Type: Spontaneous
  Country: US (occurrence: US)
  Receive Date: 20250116
  Receipt Date: 20250423
  Transmission Date: 20250716
  Serious: No
  Sender: VERTEX
  Company Number: US-VERTEX PHARMACEUTICALS-2025-000507

PATIENT

DRUGS (1)
  1. KALYDECO [Suspect]
     Active Substance: IVACAFTOR
     Indication: Cystic fibrosis
     Route: 048

REACTIONS (9)
  - Depression [Unknown]
  - Anxiety [Unknown]
  - Infection [Unknown]
  - Attention deficit hyperactivity disorder [Not Recovered/Not Resolved]
  - Fatigue [Unknown]
  - Hunger [Recovering/Resolving]
  - Weight increased [Unknown]
  - Illness [Unknown]
  - Weight decreased [Unknown]
